FAERS Safety Report 12962267 (Version 1)
Quarter: 2016Q4

REPORT INFORMATION
  Report Type: Spontaneous
  Country: US (occurrence: US)
  Receive Date: 20161121
  Receipt Date: 20161121
  Transmission Date: 20170207
  Serious: No
  Sender: FDA-Public Use
  Company Number: US-PFIZER INC-2016531880

PATIENT
  Age: 63 Year
  Sex: Male

DRUGS (3)
  1. DOPAMINE HCL [Suspect]
     Active Substance: DOPAMINE HYDROCHLORIDE
     Dosage: UNK
  2. DARVON [Suspect]
     Active Substance: PROPOXYPHENE HYDROCHLORIDE
     Dosage: UNK
  3. TRICOR [Suspect]
     Active Substance: FENOFIBRATE
     Dosage: UNK

REACTIONS (1)
  - Drug hypersensitivity [Unknown]
